FAERS Safety Report 20731843 (Version 1)
Quarter: 2022Q2

REPORT INFORMATION
  Report Type: Spontaneous
  Country: PT (occurrence: PT)
  Receive Date: 20220420
  Receipt Date: 20220420
  Transmission Date: 20220721
  Serious: Yes (Other)
  Sender: FDA-Public Use
  Company Number: PT-SA-2022SA139639

PATIENT
  Age: 20 Year
  Sex: Male

DRUGS (16)
  1. EFMOROCTOCOG ALFA [Suspect]
     Active Substance: EFMOROCTOCOG ALFA
     Indication: Prophylaxis
     Dosage: 2000 UIU (30 UI/KG) THRICE A WEEK
     Dates: start: 202001
  2. EFMOROCTOCOG ALFA [Suspect]
     Active Substance: EFMOROCTOCOG ALFA
     Indication: Prophylaxis
     Dosage: 2000 UIU (30 UI/KG) THRICE A WEEK
     Dates: start: 202001
  3. EFMOROCTOCOG ALFA [Suspect]
     Active Substance: EFMOROCTOCOG ALFA
     Dosage: 4000 IU (50 IU/KG)
     Dates: start: 20220323
  4. EFMOROCTOCOG ALFA [Suspect]
     Active Substance: EFMOROCTOCOG ALFA
     Dosage: 4000 IU (50 IU/KG)
     Dates: start: 20220323
  5. EFMOROCTOCOG ALFA [Suspect]
     Active Substance: EFMOROCTOCOG ALFA
     Dosage: 3000 IU (40 IU/KG) EVERY 8 HOURS ON THE DAY OF SURGERY AND ON THE FIRST POSTOPERATIVE DAY
     Dates: start: 20220323, end: 20220324
  6. EFMOROCTOCOG ALFA [Suspect]
     Active Substance: EFMOROCTOCOG ALFA
     Dosage: 3000 IU (40 IU/KG) EVERY 8 HOURS ON THE DAY OF SURGERY AND ON THE FIRST POSTOPERATIVE DAY
     Dates: start: 20220323, end: 20220324
  7. EFMOROCTOCOG ALFA [Suspect]
     Active Substance: EFMOROCTOCOG ALFA
     Dosage: 3000 IU 12/12H ON THE SECOND POST-OP DAY
     Dates: start: 20220325
  8. EFMOROCTOCOG ALFA [Suspect]
     Active Substance: EFMOROCTOCOG ALFA
     Dosage: 3000 IU 12/12H ON THE SECOND POST-OP DAY
     Dates: start: 20220325
  9. EFMOROCTOCOG ALFA [Suspect]
     Active Substance: EFMOROCTOCOG ALFA
     Dosage: 3000 IU ONCE A DAY ON THE THIRD AND FOURTH POST-OP DAYS
     Dates: start: 20220326, end: 20220327
  10. EFMOROCTOCOG ALFA [Suspect]
     Active Substance: EFMOROCTOCOG ALFA
     Dosage: 3000 IU ONCE A DAY ON THE THIRD AND FOURTH POST-OP DAYS
     Dates: start: 20220326, end: 20220327
  11. EFMOROCTOCOG ALFA [Suspect]
     Active Substance: EFMOROCTOCOG ALFA
     Dosage: 2000 IU (30 IU/KG) ONCE A DAY ON THE FIFTH AND SIXTH POST-OP DAYS
     Dates: start: 20220328, end: 20220329
  12. EFMOROCTOCOG ALFA [Suspect]
     Active Substance: EFMOROCTOCOG ALFA
     Dosage: 2000 IU (30 IU/KG) ONCE A DAY ON THE FIFTH AND SIXTH POST-OP DAYS
     Dates: start: 20220328, end: 20220329
  13. EFMOROCTOCOG ALFA [Suspect]
     Active Substance: EFMOROCTOCOG ALFA
     Dosage: 2000 IU DOSE OF ELOCTA ONCE DAILY UNTIL 4 DAYS AFTER DISCHARGE
     Dates: start: 20220330, end: 20220402
  14. EFMOROCTOCOG ALFA [Suspect]
     Active Substance: EFMOROCTOCOG ALFA
     Dosage: 2000 IU DOSE OF ELOCTA ONCE DAILY UNTIL 4 DAYS AFTER DISCHARGE
     Dates: start: 20220330, end: 20220402
  15. EFMOROCTOCOG ALFA [Suspect]
     Active Substance: EFMOROCTOCOG ALFA
     Dosage: 3000 IU EVERY OTHER DAY
     Dates: start: 202204
  16. EFMOROCTOCOG ALFA [Suspect]
     Active Substance: EFMOROCTOCOG ALFA
     Dosage: 3000 IU EVERY OTHER DAY
     Dates: start: 202204

REACTIONS (1)
  - Haemophilic arthropathy [Recovered/Resolved]
